FAERS Safety Report 7346350-0 (Version None)
Quarter: 2011Q1

REPORT INFORMATION
  Report Type: 
  Country: None (occurrence: None)
  Receive Date: 20110311
  Receipt Date: 20100928
  Transmission Date: 20110831
  Serious: Yes (Hospitalization, Other)
  Sender: FDA-Public Use
  Company Number: US-BAYER-200940509NA

PATIENT
  Sex: Female
  Weight: 135.15 kg

DRUGS (11)
  1. YAZ [Suspect]
     Indication: METABOLIC SYNDROME
  2. METFORMIN [Concomitant]
     Dosage: 500 MG, UNK
     Dates: start: 20071022
  3. PHENTERMINE [Concomitant]
     Indication: WEIGHT DECREASED
  4. YASMIN [Suspect]
     Indication: PRODUCT USED FOR UNKNOWN INDICATION
  5. ACETAMINOPHEN AND HYDROCODONE BITARTRATE [Concomitant]
     Dosage: UNK
     Dates: start: 20071223
  6. LIPITOR [Concomitant]
     Dosage: UNK
     Dates: start: 20071224
  7. ADVIL [Concomitant]
  8. UNCODEABLE ^UNCLASSIFIABLE^ [Concomitant]
     Dosage: 500 MG, UNK
     Dates: start: 20070906
  9. METOPROLOL [Concomitant]
     Dosage: UNK
     Dates: start: 20071223
  10. GLUCOPHAGE [Concomitant]
     Dosage: UNK
     Dates: start: 20071022, end: 20071224
  11. YAZ [Suspect]
     Indication: DYSMENORRHOEA
     Dosage: UNK
     Dates: start: 20070906, end: 20071201

REACTIONS (10)
  - PULMONARY EMBOLISM [None]
  - OEDEMA PERIPHERAL [None]
  - DEEP VEIN THROMBOSIS [None]
  - PAIN IN EXTREMITY [None]
  - GASTROOESOPHAGEAL REFLUX DISEASE [None]
  - CHEST PAIN [None]
  - DYSPNOEA [None]
  - TACHYCARDIA [None]
  - HYPERTENSION [None]
  - HYPERHIDROSIS [None]
